FAERS Safety Report 8055634-2 (Version None)
Quarter: 2012Q1

REPORT INFORMATION
  Report Type: 
  Country: None (occurrence: None)
  Receive Date: 20120112
  Receipt Date: 20111228
  Transmission Date: 20120608
  Serious: Yes (Other)
  Sender: FDA-Public Use
  Company Number: FK201103128

PATIENT
  Age: 52 Year

DRUGS (5)
  1. VINCRISTINE [Concomitant]
  2. CLARITHROMYCIN [Concomitant]
  3. DOXORUBICIN HCL [Concomitant]
  4. PAMIDRONATE DISODIUM [Suspect]
     Indication: PRODUCT USED FOR UNKNOWN INDICATION
     Dosage: 90 MG, MONTHLY, INTRAVENOUS (NOT OTHERWISE SPECIFIED)
     Route: 042
     Dates: start: 19970401
  5. DEXAMETHASONE [Concomitant]

REACTIONS (5)
  - FOOT FRACTURE [None]
  - NEOPLASM RECURRENCE [None]
  - STEM CELL TRANSPLANT [None]
  - MULTIPLE MYELOMA [None]
  - NEUROPATHY PERIPHERAL [None]
